FAERS Safety Report 10674224 (Version 1)
Quarter: 2014Q4

REPORT INFORMATION
  Report Type: Spontaneous
  Country: JP (occurrence: None)
  Receive Date: 20141222
  Receipt Date: 20141222
  Transmission Date: 20150529
  Serious: Yes (Other)
  Sender: FDA-Public Use
  Company Number: 2014COR00149

PATIENT
  Age: 56 Year
  Sex: Female

DRUGS (1)
  1. ZONISAMIDE. [Suspect]
     Active Substance: ZONISAMIDE
     Indication: FIBROMYALGIA

REACTIONS (4)
  - Intestinal ulcer [None]
  - Erosive oesophagitis [None]
  - Intestinal stenosis [None]
  - Toxic epidermal necrolysis [None]
